FAERS Safety Report 5110904-2 (Version None)
Quarter: 2006Q3

REPORT INFORMATION
  Report Type: 
  Country: None (occurrence: None)
  Receive Date: 20060919
  Receipt Date: 20060906
  Transmission Date: 20061208
  Serious: Yes (Death, Other)
  Sender: FDA-Public Use
  Company Number: 2006108499

PATIENT
  Sex: Male

DRUGS (1)
  1. VFEND [Suspect]
     Indication: DRUG USE FOR UNKNOWN INDICATION
     Dosage: 400 MG, INTRAVENOUS
     Route: 042
     Dates: start: 20060801

REACTIONS (1)
  - HYPOGLYCAEMIA [None]
